FAERS Safety Report 5521970-4 (Version None)
Quarter: 2007Q4

REPORT INFORMATION
  Report Type: 
  Country: None (occurrence: None)
  Receive Date: 20071120
  Receipt Date: 20070620
  Transmission Date: 20080405
  Serious: No
  Sender: FDA-Public Use
  Company Number: US-BRISTOL-MYERS SQUIBB COMPANY-13820550

PATIENT
  Age: 50 Year
  Sex: Male
  Weight: 107 kg

DRUGS (5)
  1. AVALIDE [Suspect]
     Indication: HYPERTENSION
     Route: 048
  2. GLUCOPHAGE [Concomitant]
  3. GLIPIZIDE [Concomitant]
  4. DIGITEK [Concomitant]
  5. PEPCID [Concomitant]

REACTIONS (1)
  - DRUG INEFFECTIVE [None]
